FAERS Safety Report 18726242 (Version 1)
Quarter: 2021Q1

REPORT INFORMATION
  Report Type: Spontaneous
  Country: FR (occurrence: FR)
  Receive Date: 20210111
  Receipt Date: 20210111
  Transmission Date: 20210419
  Serious: Yes (Hospitalization, Other)
  Sender: FDA-Public Use
  Company Number: FR-BRISTOL-MYERS SQUIBB COMPANY-BMS-2020-113093

PATIENT
  Age: 71 Year

DRUGS (1)
  1. HYDREA [Suspect]
     Active Substance: HYDROXYUREA
     Indication: THROMBOCYTOSIS
     Dosage: UNAVAILABLE
     Route: 065
     Dates: start: 2005, end: 201912

REACTIONS (6)
  - Lower gastrointestinal haemorrhage [Recovered/Resolved]
  - Plasma cell myeloma [Unknown]
  - Sepsis [Recovered/Resolved]
  - Gastrointestinal disorder [Unknown]
  - Asthenia [Unknown]
  - Confusional state [Unknown]

NARRATIVE: CASE EVENT DATE: 201908
